FAERS Safety Report 9400962 (Version 3)
Quarter: 2013Q3

REPORT INFORMATION
  Report Type: Spontaneous
  Country: CA (occurrence: CA)
  Receive Date: 20130715
  Receipt Date: 20130821
  Transmission Date: 20140515
  Serious: Yes (Hospitalization, Other)
  Sender: FDA-Public Use
  Company Number: CA-AMGEN-CANSP2013048952

PATIENT
  Age: 74 Year
  Sex: Male
  Weight: 50 kg

DRUGS (10)
  1. PROLIA [Suspect]
     Indication: PRODUCT USED FOR UNKNOWN INDICATION
     Dosage: 60 MG, Q6MO
     Route: 058
     Dates: start: 201106
  2. PREDNISONE [Concomitant]
     Indication: PRODUCT USED FOR UNKNOWN INDICATION
     Dosage: 5 MG, QD
     Route: 048
  3. AMLODIPINE [Concomitant]
  4. ROXAR [Concomitant]
  5. METOPROLOL [Concomitant]
  6. APO-HYDROXYQUINE [Concomitant]
     Dosage: 200 MG, QD
  7. ROCALTROL [Concomitant]
  8. COVERSYL                           /00790702/ [Concomitant]
  9. DOXAZOSIN [Concomitant]
  10. CLONIDINE [Concomitant]

REACTIONS (7)
  - Spinal disorder [Unknown]
  - Myelomalacia [Unknown]
  - Cervical myelopathy [Not Recovered/Not Resolved]
  - Intervertebral disc disorder [Not Recovered/Not Resolved]
  - Fall [Unknown]
  - Muscular weakness [Unknown]
  - Gait disturbance [Unknown]
